FAERS Safety Report 10373841 (Version 1)
Quarter: 2014Q1

REPORT INFORMATION
  Report Type: Spontaneous
  Country: US (occurrence: None)
  Receive Date: 20140306
  Receipt Date: 20140306
  Transmission Date: 20141002
  Serious: Yes (Hospitalization)
  Sender: FDA-Public Use
  Company Number: 163-21880-13094136

PATIENT
  Age: 83 Year
  Sex: Female

DRUGS (9)
  1. REVLIMID [Suspect]
     Indication: PLASMA CELL MYELOMA
     Route: 048
     Dates: start: 20121206, end: 201309
  2. DURAGESIC (FENTANYL) (POULTICE OR PATCH) [Concomitant]
  3. NEXIUM (ESOMEPRAZOLE) [Concomitant]
  4. OXYCODONE [Concomitant]
  5. COMPAZINE (PROCHLORPERAZINE EDISYLATE) [Concomitant]
  6. BYSTOLIC (NEBIVOLOL HYDROCHLORIDE) [Concomitant]
  7. LEVAQUIN (LEVOFLOXACIN) [Concomitant]
  8. SENNA S (COLOXYL WITH SENNA) [Concomitant]
  9. REGLAN (METOCLOPRAMIDE) [Concomitant]

REACTIONS (2)
  - Plasma cell myeloma [None]
  - Drug ineffective [None]
